FAERS Safety Report 25547201 (Version 1)
Quarter: 2025Q3

REPORT INFORMATION
  Report Type: Spontaneous
  Country: EU (occurrence: EU)
  Receive Date: 20250714
  Receipt Date: 20250714
  Transmission Date: 20251020
  Serious: Yes (Hospitalization)
  Sender: Haleon PLC
  Company Number: None

PATIENT
  Age: 70 Year
  Sex: Male

DRUGS (2)
  1. DICLOFENAC [Suspect]
     Active Substance: DICLOFENAC
     Indication: Sciatica
     Dosage: 75 MG*2/DAY
     Route: 048
     Dates: start: 20250616, end: 20250621
  2. ACETAMINOPHEN\OPIUM [Suspect]
     Active Substance: ACETAMINOPHEN\OPIUM
     Indication: Sciatica
     Route: 048
     Dates: start: 20250616, end: 20250621

REACTIONS (1)
  - Pancreatitis acute [Recovering/Resolving]

NARRATIVE: CASE EVENT DATE: 20250629
